FAERS Safety Report 9556770 (Version 1)
Quarter: 2013Q3

REPORT INFORMATION
  Report Type: Spontaneous
  Country: US (occurrence: None)
  Receive Date: 20130724
  Receipt Date: 20130724
  Transmission Date: 20140515
  Serious: Yes (Other)
  Sender: FDA-Public Use
  Company Number: PHEH2013US007632

PATIENT
  Age: 59 Year
  Sex: Female
  Weight: 85.3 kg

DRUGS (16)
  1. GILENYA [Suspect]
     Indication: MULTIPLE SCLEROSIS
     Route: 048
     Dates: start: 20130325
  2. BACLOFEN (BACLOFEN) [Concomitant]
  3. SINGULAIR [Concomitant]
  4. LORAZEPAM (LORAZEPAM) [Concomitant]
  5. DOCUSATE SODIUM (DOCUSATE SODIUM) [Concomitant]
  6. RESTORIL (TEMAZEPAM) [Concomitant]
  7. SEROQUEL (QUETIAPINE FUMARATE) [Concomitant]
  8. KLONOPIN (CLONAZEPAM) [Concomitant]
  9. ROPINIROLE (ROPINIROLE) [Concomitant]
  10. ZOLPIDEM (ZOLPIDEM) [Concomitant]
  11. FLEXERIL (CYCLOBENZAPRINE HYDROCHLORIDE) [Concomitant]
  12. OMEPRAZOLE (OMEPRAZOLE) [Concomitant]
  13. FLUTICASONE (FLUTICASONE) [Concomitant]
  14. DEXAMETHASONE (DEXAMETHASONE) [Concomitant]
  15. DAILY VITAMINS (VITAMINS NOS) [Concomitant]
  16. HYDROCHLOROTHIAZIDE (HYDROCHLOROTHIAZIDE) [Concomitant]

REACTIONS (2)
  - Fatigue [None]
  - Back pain [None]
